FAERS Safety Report 5298841-4 (Version None)
Quarter: 2007Q2

REPORT INFORMATION
  Report Type: 
  Country: None (occurrence: None)
  Receive Date: 20070411
  Receipt Date: 20070411
  Transmission Date: 20071010
  Serious: Yes (Hospitalization)
  Sender: FDA-Public Use
  Company Number: None

PATIENT
  Age: 88 Year
  Sex: Male
  Weight: 56.2 kg

DRUGS (3)
  1. SPIRONOLACTONE [Suspect]
     Indication: CARDIAC CIRRHOSIS
     Dosage: 100MG, 100MG QD, ORAL
     Route: 048
     Dates: start: 20070104, end: 20070320
  2. SPIRONOLACTONE [Suspect]
     Indication: CARDIAC FAILURE CONGESTIVE
     Dosage: 100MG, 100MG QD, ORAL
     Route: 048
     Dates: start: 20070104, end: 20070320
  3. NUTRITION SUPL ENSURE PLUS [Concomitant]

REACTIONS (1)
  - HYPERKALAEMIA [None]
